FAERS Safety Report 6866838-6 (Version None)
Quarter: 2010Q2

REPORT INFORMATION
  Report Type: 
  Country: None (occurrence: None)
  Receive Date: 20100528
  Receipt Date: 20100129
  Transmission Date: 20101027
  Serious: No
  Sender: FDA-Public Use
  Company Number: 006333

PATIENT
  Sex: Female

DRUGS (3)
  1. LACOSAMIDE [Suspect]
     Dates: start: 20090101
  2. LAMOTRIGINE [Suspect]
     Indication: EPILEPSY
     Dosage: (225 MG TID ORAL)
     Route: 048
     Dates: start: 20080101
  3. TOPIRAMATE [Concomitant]

REACTIONS (2)
  - ALOPECIA [None]
  - DRUG INEFFECTIVE [None]
